FAERS Safety Report 10724284 (Version 1)
Quarter: 2015Q1

REPORT INFORMATION
  Report Type: Spontaneous
  Country: CN (occurrence: CN)
  Receive Date: 20150120
  Receipt Date: 20150120
  Transmission Date: 20150721
  Serious: Yes (Other)
  Sender: FDA-Public Use
  Company Number: CN-PFIZER INC-2015016389

PATIENT
  Age: 48 Year
  Sex: Female
  Weight: 86 kg

DRUGS (1)
  1. NORVASC [Suspect]
     Active Substance: AMLODIPINE BESYLATE
     Indication: COAGULOPATHY
     Dosage: 1 DF, 1X/DAY
     Route: 048
     Dates: start: 20140310, end: 20140313

REACTIONS (11)
  - Gastrointestinal haemorrhage [Recovering/Resolving]
  - Dyspepsia [Unknown]
  - Nausea [Unknown]
  - Headache [Unknown]
  - Visual acuity reduced [Unknown]
  - Hypoacusis [Unknown]
  - Tinnitus [Unknown]
  - Asthma [Unknown]
  - Product use issue [Unknown]
  - Vertigo [Unknown]
  - Rash [Unknown]

NARRATIVE: CASE EVENT DATE: 20140313
